FAERS Safety Report 4843881-X (Version None)
Quarter: 2005Q4

REPORT INFORMATION
  Report Type: 
  Country: None (occurrence: None)
  Receive Date: 20051130
  Receipt Date: 20051130
  Transmission Date: 20060501
  Serious: Yes (Life-Threatening, Hospitalization, Other)
  Sender: FDA-Public Use
  Company Number: None

PATIENT
  Sex: Male
  Weight: 78.0187 kg

DRUGS (1)
  1. UROXATRAL [Suspect]
     Indication: NOCTURIA
     Dosage: DAILY
     Dates: start: 20051108, end: 20051109

REACTIONS (1)
  - CEREBROVASCULAR ACCIDENT [None]
